FAERS Safety Report 23873157 (Version 2)
Quarter: 2024Q2

REPORT INFORMATION
  Report Type: Spontaneous
  Country: BG (occurrence: BG)
  Receive Date: 20240520
  Receipt Date: 20240603
  Transmission Date: 20240716
  Serious: Yes (Life-Threatening, Hospitalization, Other)
  Sender: FDA-Public Use
  Company Number: None

PATIENT
  Age: 74 Year
  Sex: Male

DRUGS (8)
  1. METOPROLOL TARTRATE [Suspect]
     Active Substance: METOPROLOL TARTRATE
     Indication: Hypertension
     Dosage: HALF A TABLET IN THE MORNING FOR THE PAST 3 YEARS
  2. METFORMIN HYDROCHLORIDE [Suspect]
     Active Substance: METFORMIN HYDROCHLORIDE
     Indication: Diabetes mellitus
     Dosage: 850 MG, TID
  3. HYDROCHLOROTHIAZIDE\LOSARTAN POTASSIUM [Suspect]
     Active Substance: HYDROCHLOROTHIAZIDE\LOSARTAN POTASSIUM
     Indication: Hypertension
     Dosage: 50MG/12.5MG, QD (MORNING)
  4. NIFEDIPINE [Suspect]
     Active Substance: NIFEDIPINE
     Indication: Hypertension
     Dosage: 20 MG, BID (ONCE IN THE MORNING AND ONCE IN THE EVENING)
  5. GLIMEPIRIDE [Concomitant]
     Active Substance: GLIMEPIRIDE
     Indication: Diabetes mellitus
     Dosage: 3 MG, QD (ONCE IN THE MORNING)
  6. MOXONIDINE [Concomitant]
     Active Substance: MOXONIDINE
     Indication: Hypertension
     Dosage: 0.2 MG, BID (ONCE IN THE MORNING AND ONCE IN THE EVENING)
  7. THIOCTIC ACID [Concomitant]
     Active Substance: THIOCTIC ACID
     Dosage: UNK UNK, QD (ONCE IN THE MORNING)
  8. PENTOXIFYLLINE [Concomitant]
     Active Substance: PENTOXIFYLLINE
     Dosage: 400 MG, QD (ONCE IN THE EVENING)

REACTIONS (8)
  - Neoplasm malignant [Recovering/Resolving]
  - Squamous cell carcinoma of skin [Recovering/Resolving]
  - External ear neoplasm malignant [Recovering/Resolving]
  - Squamous cell carcinoma [Recovering/Resolving]
  - Basal cell carcinoma [Recovering/Resolving]
  - Neoplasm [Recovering/Resolving]
  - Skin atrophy [Recovering/Resolving]
  - Hyperaemia [Recovering/Resolving]
